FAERS Safety Report 25155790 (Version 3)
Quarter: 2025Q2

REPORT INFORMATION
  Report Type: Spontaneous
  Country: US (occurrence: US)
  Receive Date: 20250403
  Receipt Date: 20250505
  Transmission Date: 20250716
  Serious: No
  Sender: PFIZER
  Company Number: US-PFIZER INC-202500067505

PATIENT
  Age: 10 Year
  Sex: Male
  Weight: 27.67 kg

DRUGS (1)
  1. GENOTROPIN [Suspect]
     Active Substance: SOMATROPIN
     Indication: Growth hormone deficiency
     Dosage: 1.1 MG, 1X/DAY (EVERY NIGHT)
     Dates: start: 202405

REACTIONS (4)
  - Drug dose omission by device [Unknown]
  - Incorrect dose administered by device [Unknown]
  - Device delivery system issue [Unknown]
  - Device material issue [Unknown]

NARRATIVE: CASE EVENT DATE: 20250326
